FAERS Safety Report 25432673 (Version 1)
Quarter: 2025Q2

REPORT INFORMATION
  Report Type: Spontaneous
  Country: RU (occurrence: RU)
  Receive Date: 20250613
  Receipt Date: 20250613
  Transmission Date: 20250717
  Serious: Yes (Death, Life-Threatening, Hospitalization, Other)
  Sender: RANBAXY
  Company Number: RU-SUN PHARMACEUTICAL INDUSTRIES INC-2025R1-511485

PATIENT
  Age: 72 Year
  Sex: Female
  Weight: 100 kg

DRUGS (6)
  1. OMEPRAZOLE [Suspect]
     Active Substance: OMEPRAZOLE
     Indication: Metabolic disorder
     Route: 042
  2. MAGNESIUM SULFATE [Suspect]
     Active Substance: MAGNESIUM SULFATE
     Indication: Metabolic disorder
     Route: 042
  3. MAGNESIUM SULFATE [Suspect]
     Active Substance: MAGNESIUM SULFATE
     Route: 051
  4. PYRIDOXINE [Suspect]
     Active Substance: PYRIDOXINE
     Indication: Metabolic disorder
     Route: 058
  5. GLYCINE [Suspect]
     Active Substance: GLYCINE
     Indication: Metabolic disorder
     Route: 065
  6. THIAMINE [Suspect]
     Active Substance: THIAMINE
     Indication: Metabolic disorder
     Route: 058

REACTIONS (3)
  - Rhinocerebral mucormycosis [Fatal]
  - Cardiac arrest [Fatal]
  - Death [Fatal]
